FAERS Safety Report 17172404 (Version 2)
Quarter: 2020Q1

REPORT INFORMATION
  Report Type: Spontaneous
  Country: PT (occurrence: PT)
  Receive Date: 20191219
  Receipt Date: 20200122
  Transmission Date: 20200409
  Serious: Yes (Other)
  Sender: FDA-Public Use
  Company Number: PT-GILEAD-2019-0442814

PATIENT
  Age: 50 Year
  Sex: Female

DRUGS (2)
  1. PERINDOPRIL/AMLODIPINE HCS [Concomitant]
     Indication: HYPERTENSION
  2. EPCLUSA [Suspect]
     Active Substance: SOFOSBUVIR\VELPATASVIR
     Indication: CHRONIC HEPATITIS C
     Dosage: UNK
     Route: 065
     Dates: start: 20190220, end: 20190514

REACTIONS (2)
  - Drug ineffective [Unknown]
  - Hepatocellular injury [Not Recovered/Not Resolved]

NARRATIVE: CASE EVENT DATE: 20190806
